FAERS Safety Report 16337272 (Version 2)
Quarter: 2019Q3

REPORT INFORMATION
  Report Type: Spontaneous
  Country: JP (occurrence: JP)
  Receive Date: 20190521
  Receipt Date: 20190807
  Transmission Date: 20191004
  Serious: Yes (Hospitalization, Other)
  Sender: FDA-Public Use
  Company Number: JP-SA-2019SA137813

PATIENT
  Age: 70 Year
  Sex: Male

DRUGS (10)
  1. PACLITAXEL. [Suspect]
     Active Substance: PACLITAXEL
     Indication: GASTRIC CANCER
     Dosage: UNK UNK, QCY
  2. CYRAMZA [Suspect]
     Active Substance: RAMUCIRUMAB
     Indication: METASTASES TO LIVER
  3. CYRAMZA [Suspect]
     Active Substance: RAMUCIRUMAB
     Indication: GASTRIC CANCER
     Dosage: UNK UNK, QCY
  4. ELPLAT [Suspect]
     Active Substance: OXALIPLATIN
     Indication: GASTRIC CANCER
     Dosage: UNK UNK, QD
     Route: 041
  5. ELPLAT [Suspect]
     Active Substance: OXALIPLATIN
     Indication: METASTASES TO LIVER
  6. PACLITAXEL. [Suspect]
     Active Substance: PACLITAXEL
     Indication: METASTASES TO LIVER
  7. GIMERACIL;OTERACIL POTASSIUM;TEGAFUR [Suspect]
     Active Substance: GIMERACIL\OTERACIL\TEGAFUR
     Indication: GASTRIC CANCER
     Dosage: UNK UNK, QCY
     Route: 048
  8. OPDIVO [Suspect]
     Active Substance: NIVOLUMAB
     Indication: GASTRIC CANCER
     Dosage: UNK UNK, QCY
  9. OPDIVO [Suspect]
     Active Substance: NIVOLUMAB
     Indication: METASTASES TO LIVER
  10. GIMERACIL;OTERACIL POTASSIUM;TEGAFUR [Suspect]
     Active Substance: GIMERACIL\OTERACIL\TEGAFUR
     Indication: METASTASES TO LIVER

REACTIONS (6)
  - Drug ineffective [Unknown]
  - Oesophageal varices haemorrhage [Recovered/Resolved]
  - Upper gastrointestinal haemorrhage [Recovered/Resolved]
  - Condition aggravated [Unknown]
  - Vomiting [Unknown]
  - Fatigue [Unknown]
